FAERS Safety Report 20389151 (Version 1)
Quarter: 2022Q1

REPORT INFORMATION
  Report Type: Report from Study
  Country: DE (occurrence: None)
  Receive Date: 20220128
  Receipt Date: 20220128
  Transmission Date: 20220424
  Serious: Yes (Other)
  Sender: FDA-Public Use
  Company Number: DE-Merck Healthcare KGaA-9295486

PATIENT
  Age: 3 Year
  Sex: Female

DRUGS (1)
  1. SAIZEN [Suspect]
     Active Substance: SOMATROPIN
     Indication: Growth disorder
     Route: 058
     Dates: start: 201807, end: 2020

REACTIONS (1)
  - Renal transplant [Recovered/Resolved]

NARRATIVE: CASE EVENT DATE: 20200101
